FAERS Safety Report 10244865 (Version 1)
Quarter: 2014Q2

REPORT INFORMATION
  Report Type: Spontaneous
  Country: DE (occurrence: DE)
  Receive Date: 20140618
  Receipt Date: 20140618
  Transmission Date: 20141212
  Serious: Yes (Other)
  Sender: FDA-Public Use
  Company Number: DE-ACTAVIS-2014-13579

PATIENT
  Age: 28 Year
  Sex: Female

DRUGS (1)
  1. MIRTAZAPINE (UNKNOWN) [Suspect]
     Indication: MAJOR DEPRESSION
     Dosage: 30 MG, DAILY
     Route: 065

REACTIONS (3)
  - Galactorrhoea [Recovered/Resolved]
  - Blood prolactin increased [Recovered/Resolved]
  - Generalised oedema [Recovered/Resolved]
